FAERS Safety Report 8904406 (Version 1)
Quarter: 2012Q4

REPORT INFORMATION
  Report Type: 
  Country: ES (occurrence: ES)
  Receive Date: 20121112
  Receipt Date: 20121112
  Transmission Date: 20130627
  Serious: Yes (Hospitalization)
  Sender: FDA-Public Use
  Company Number: ES-BAYER-2012-117283

PATIENT
  Age: 67 Year
  Sex: Male

DRUGS (6)
  1. ADIRO 100 [Suspect]
     Indication: CARDIOVASCULAR EVENT PROPHYLAXIS
     Dosage: 100 mg, QD
     Route: 048
     Dates: start: 20081016
  2. ALDOCUMAR [Interacting]
     Indication: ATRIAL FIBRILLATION
     Route: 048
     Dates: start: 20100918, end: 20120424
  3. DIANBEN [Concomitant]
     Indication: DIABETES MELLITUS
     Dates: start: 20120419, end: 20120424
  4. COLCHIMAX [COLCHICINE,DICYCLOVERINE HYDROCHLORIDE] [Concomitant]
     Indication: GOUT
     Dates: start: 20120419, end: 20120424
  5. NAPROSYN [Concomitant]
     Indication: GOUT
     Dates: start: 20100908, end: 20120331
  6. DIGOSIN [Concomitant]
     Indication: ATRIAL FIBRILLATION
     Dates: start: 20120419

REACTIONS (3)
  - Gastrointestinal haemorrhage [Recovered/Resolved]
  - Anaemia [Recovered/Resolved]
  - Angina pectoris [Recovered/Resolved]
